FAERS Safety Report 5250538-2 (Version None)
Quarter: 2007Q1

REPORT INFORMATION
  Report Type: 
  Country: None (occurrence: None)
  Receive Date: 20070223
  Receipt Date: 20070209
  Transmission Date: 20070707
  Serious: Yes (Other)
  Sender: FDA-Public Use
  Company Number: 2007US000092

PATIENT
  Age: 79 Year
  Sex: Female

DRUGS (8)
  1. AMEVIVE [Suspect]
     Indication: PSORIASIS
     Dosage: 15 MG, WEEKLY, INTRAMUSCULAR
     Route: 030
     Dates: start: 20050411
  2. ALTACE [Concomitant]
  3. AVANDIA [Concomitant]
  4. GLYBURIDE [Concomitant]
  5. CRESTOR [Concomitant]
  6. LOSEC (OMEPRAZOLE MAGNESIUM) [Concomitant]
  7. VITALUX (IRON OXIDES) [Concomitant]
  8. TYLENOL [Concomitant]

REACTIONS (3)
  - KERATOACANTHOMA [None]
  - PURULENT DISCHARGE [None]
  - SQUAMOUS CELL CARCINOMA [None]
